FAERS Safety Report 5129643-7 (Version None)
Quarter: 2006Q4

REPORT INFORMATION
  Report Type: 
  Country: None (occurrence: None)
  Receive Date: 20061012
  Receipt Date: 20060929
  Transmission Date: 20070319
  Serious: Yes (Hospitalization, Other)
  Sender: FDA-Public Use
  Company Number: 2006118837

PATIENT
  Age: 35 Year
  Sex: Female

DRUGS (1)
  1. DETROL LA [Suspect]
     Indication: NEPHROLITHIASIS
     Dosage: 4 MG (4 MG, 1 IN 1 D), ORAL
     Route: 048
     Dates: start: 20060617

REACTIONS (6)
  - DIZZINESS [None]
  - DRUG INEFFECTIVE [None]
  - DRY MOUTH [None]
  - DYSURIA [None]
  - URINARY TRACT INFECTION [None]
  - WEIGHT DECREASED [None]
